FAERS Safety Report 5169172-8 (Version None)
Quarter: 2006Q4

REPORT INFORMATION
  Report Type: 
  Country: None (occurrence: None)
  Receive Date: 20061211
  Receipt Date: 20061206
  Transmission Date: 20070319
  Serious: Yes (Other)
  Sender: FDA-Public Use
  Company Number: 2006UW27164

PATIENT
  Age: 66 Year
  Sex: Female

DRUGS (2)
  1. ARIMIDEX [Suspect]
     Indication: BREAST CANCER
     Route: 048
  2. PROTEASE [Concomitant]

REACTIONS (3)
  - APPENDICITIS [None]
  - ASTHENIA [None]
  - FATIGUE [None]
